FAERS Safety Report 11190190 (Version 1)
Quarter: 2015Q2

REPORT INFORMATION
  Report Type: Spontaneous
  Country: SE (occurrence: SE)
  Receive Date: 20150615
  Receipt Date: 20150615
  Transmission Date: 20150821
  Serious: Yes (Hospitalization)
  Sender: FDA-Public Use
  Company Number: SE-GUERBET LLC-1039971

PATIENT
  Age: 41 Year
  Sex: Male

DRUGS (3)
  1. CLEMASTINE FUMARATE. [Interacting]
     Active Substance: CLEMASTINE FUMARATE
     Dates: start: 20150521, end: 20150521
  2. DOTAREM [Suspect]
     Active Substance: GADOTERATE MEGLUMINE
     Indication: NUCLEAR MAGNETIC RESONANCE IMAGING BRAIN
     Route: 050
     Dates: start: 20150521, end: 20150521
  3. BETAMETHASONE SODIUM PHOSPHATE AND BETAMETHASONE ACETATE [Interacting]
     Active Substance: BETAMETHASONE ACETATE\BETAMETHASONE SODIUM PHOSPHATE
     Dates: start: 20150521, end: 20150521

REACTIONS (2)
  - Respiratory distress [Recovered/Resolved]
  - Urticaria [Recovered/Resolved]

NARRATIVE: CASE EVENT DATE: 20150521
